FAERS Safety Report 6534622-9 (Version None)
Quarter: 2010Q1

REPORT INFORMATION
  Report Type: 
  Country: None (occurrence: None)
  Receive Date: 20100112
  Receipt Date: 20100106
  Transmission Date: 20100710
  Serious: Yes (Life-Threatening)
  Sender: FDA-Public Use
  Company Number: B0623765A

PATIENT
  Age: 55 Year
  Sex: Female

DRUGS (1)
  1. CLAMOXYL [Suspect]
     Route: 048
     Dates: start: 20091009, end: 20091009

REACTIONS (10)
  - ABDOMINAL PAIN [None]
  - ACCIDENTAL EXPOSURE [None]
  - ANAPHYLACTIC SHOCK [None]
  - DYSPHAGIA [None]
  - EYELID OEDEMA [None]
  - GENERALISED ERYTHEMA [None]
  - MALAISE [None]
  - PAINFUL RESPIRATION [None]
  - PRURITUS GENERALISED [None]
  - VOMITING [None]
